FAERS Safety Report 9233707 (Version 1)
Quarter: 2013Q2

REPORT INFORMATION
  Report Type: Spontaneous
  Country: US (occurrence: US)
  Receive Date: 20130416
  Receipt Date: 20130416
  Transmission Date: 20140414
  Serious: No
  Sender: FDA-Public Use
  Company Number: US-BANPHARM-20130920

PATIENT
  Age: 36 Year
  Sex: Male
  Weight: 86.17 kg

DRUGS (1)
  1. NAPROXEN SODIUM 220MG [Suspect]
     Indication: BACK PAIN
     Dosage: 1 DF,
     Route: 048
     Dates: start: 20120416, end: 20120416

REACTIONS (1)
  - Drug ineffective [Unknown]
